FAERS Safety Report 5086127-2 (Version None)
Quarter: 2006Q3

REPORT INFORMATION
  Report Type: 
  Country: None (occurrence: None)
  Receive Date: 20060818
  Receipt Date: 20060808
  Transmission Date: 20061208
  Serious: Yes (Hospitalization)
  Sender: FDA-Public Use
  Company Number: 2006084055

PATIENT
  Age: 79 Year
  Sex: Female

DRUGS (14)
  1. ZOLOFT [Suspect]
     Indication: ANXIETY
     Dosage: 25 MG (25 MG, 1 IN 1 D), ORAL
     Route: 048
     Dates: start: 20060630
  2. ZOLOFT [Suspect]
     Indication: DEPRESSION
     Dosage: 25 MG (25 MG, 1 IN 1 D), ORAL
     Route: 048
     Dates: start: 20060630
  3. ZOLOFT [Suspect]
     Indication: OBSESSIVE-COMPULSIVE DISORDER
     Dosage: 25 MG (25 MG, 1 IN 1 D), ORAL
     Route: 048
     Dates: start: 20060630
  4. AMLODIPINE [Suspect]
     Indication: DRUG USE FOR UNKNOWN INDICATION
     Dosage: 16 MG (3 IN 1 D), ORAL
     Route: 048
     Dates: start: 20030101
  5. TIAPRIDAL (TIAPRIDE) [Suspect]
     Indication: AGGRESSION
     Dosage: 16 MG (3 IN 1 D), ORAL
     Route: 048
     Dates: start: 20060630
  6. TIAPRIDAL (TIAPRIDE) [Suspect]
     Indication: AGITATION
     Dosage: 16 MG (3 IN 1 D), ORAL
     Route: 048
     Dates: start: 20060630
  7. TIAPRIDAL (TIAPRIDE) [Suspect]
     Indication: OBSESSIVE-COMPULSIVE DISORDER
     Dosage: 16 MG (3 IN 1 D), ORAL
     Route: 048
     Dates: start: 20060630
  8. LEXOMIL (BROMAZEPAM) [Suspect]
     Indication: AGITATION
     Dosage: 6 MG (3 IN 1 D), ORAL
     Route: 048
     Dates: start: 20060630
  9. LEXOMIL (BROMAZEPAM) [Suspect]
     Indication: ANXIETY
     Dosage: 6 MG (3 IN 1 D), ORAL
     Route: 048
     Dates: start: 20060630
  10. LEXOMIL (BROMAZEPAM) [Suspect]
     Indication: OBSESSIVE-COMPULSIVE DISORDER
     Dosage: 6 MG (3 IN 1 D), ORAL
     Route: 048
     Dates: start: 20060630
  11. ZESTRIL [Concomitant]
  12. ASPIRIN [Concomitant]
  13. MIRTAZAPINE [Concomitant]
  14. MIANSERIN (MIANSERIN) [Concomitant]

REACTIONS (10)
  - AGGRESSION [None]
  - AGITATION [None]
  - ANXIETY [None]
  - COGNITIVE DISORDER [None]
  - CONDITION AGGRAVATED [None]
  - CONFUSIONAL STATE [None]
  - DRUG INEFFECTIVE [None]
  - MOBILITY DECREASED [None]
  - REPETITIVE SPEECH [None]
  - SOMNOLENCE [None]
